FAERS Safety Report 6185471-5 (Version None)
Quarter: 2009Q2

REPORT INFORMATION
  Report Type: 
  Country: None (occurrence: None)
  Receive Date: 20090511
  Receipt Date: 20090504
  Transmission Date: 20091009
  Serious: Yes (Other)
  Sender: FDA-Public Use
  Company Number: PHHY2009BR17086

PATIENT
  Sex: Female

DRUGS (6)
  1. RASILEZ [Suspect]
     Indication: HYPERTENSION
     Dosage: 1 TABLET A DAY
     Route: 048
     Dates: start: 20090419
  2. RASILEZ [Suspect]
     Dosage: 1 TABLET MORE AT NIGHT
     Route: 048
     Dates: start: 20090502
  3. GALVUS [Concomitant]
     Indication: DIABETES MELLITUS
     Dosage: 1 TABLET AT LUNCH AND 1 TABLET AT NIGHT
     Dates: start: 20060101
  4. AMARYL [Concomitant]
     Indication: DIABETES MELLITUS
     Dosage: 1 TABLET AT LUNCH
     Dates: start: 20060101
  5. CALCIUM [Concomitant]
     Indication: OSTEOARTHRITIS
     Dosage: UNK
     Dates: start: 20070101
  6. ALPRAZOLAM [Concomitant]
     Dosage: 1 TABLET A DAY

REACTIONS (3)
  - BLOOD GLUCOSE INCREASED [None]
  - BLOOD PRESSURE INADEQUATELY CONTROLLED [None]
  - TACHYCARDIA [None]
